FAERS Safety Report 19571403 (Version 2)
Quarter: 2021Q3

REPORT INFORMATION
  Report Type: Spontaneous
  Country: AU (occurrence: AU)
  Receive Date: 20210716
  Receipt Date: 20210802
  Transmission Date: 20211014
  Serious: Yes (Hospitalization)
  Sender: FDA-Public Use
  Company Number: AU-GLAXOSMITHKLINE-AU2021APC151654

PATIENT
  Age: 10 Year
  Sex: Male

DRUGS (1)
  1. ZEMPREON [Suspect]
     Active Substance: ALBUTEROL SULFATE
     Indication: ASTHMA
     Dosage: UNK, 100 MCG 1X200D
     Route: 055
     Dates: start: 202104

REACTIONS (4)
  - Asthma [Unknown]
  - Product substitution issue [Unknown]
  - Drug ineffective [Unknown]
  - Product complaint [Unknown]

NARRATIVE: CASE EVENT DATE: 2021
